FAERS Safety Report 12505371 (Version 2)
Quarter: 2016Q3

REPORT INFORMATION
  Report Type: Spontaneous
  Country: JP (occurrence: JP)
  Receive Date: 20160628
  Receipt Date: 20160713
  Transmission Date: 20161109
  Serious: Yes (Life-Threatening, Hospitalization, Other)
  Sender: FDA-Public Use
  Company Number: JP-BAYER-2016-113154

PATIENT
  Age: 61 Year
  Sex: Female
  Weight: 62.8 kg

DRUGS (7)
  1. ARIMIDEX [Concomitant]
     Active Substance: ANASTROZOLE
     Dosage: 1 MG, QD
     Route: 048
     Dates: start: 20140805
  2. GADOVIST [Suspect]
     Active Substance: GADOBUTROL
     Indication: BREAST CANCER RECURRENT
  3. LUSEFI [Concomitant]
     Dosage: UNK
     Route: 048
  4. SUCRALFATE. [Concomitant]
     Active Substance: SUCRALFATE
  5. GADOVIST [Suspect]
     Active Substance: GADOBUTROL
     Indication: NUCLEAR MAGNETIC RESONANCE IMAGING BREAST
     Dosage: 7.5 ML, ONCE
     Route: 042
     Dates: start: 20160607, end: 20160607
  6. PARIET [Concomitant]
     Active Substance: RABEPRAZOLE SODIUM
     Dosage: UNK
     Route: 048
  7. AMLODIPINE [Concomitant]
     Active Substance: AMLODIPINE BESYLATE
     Dosage: UNK
     Route: 048

REACTIONS (9)
  - Cough [Recovered/Resolved]
  - Pulmonary oedema [None]
  - Anaphylactic reaction [Recovered/Resolved]
  - Oxygen saturation decreased [Recovered/Resolved]
  - Diabetes mellitus [None]
  - Dizziness [Recovered/Resolved]
  - Wheezing [Recovered/Resolved]
  - Oropharyngeal discomfort [Recovered/Resolved]
  - Malaise [Recovered/Resolved]

NARRATIVE: CASE EVENT DATE: 20160607
